FAERS Safety Report 9668415 (Version 2)
Quarter: 2013Q4

REPORT INFORMATION
  Report Type: Report from Study
  Country: HU (occurrence: HU)
  Receive Date: 20131104
  Receipt Date: 20131112
  Transmission Date: 20140711
  Serious: Yes (Hospitalization)
  Sender: FDA-Public Use
  Company Number: HU-ROCHE-1298358

PATIENT
  Age: 54 Year
  Sex: Female

DRUGS (4)
  1. PEG-INTERFERON ALFA 2A [Suspect]
     Indication: CHRONIC HEPATITIS C
     Route: 058
     Dates: start: 20130524
  2. RIBAVIRIN [Suspect]
     Indication: CHRONIC HEPATITIS C
     Route: 048
     Dates: start: 20130524
  3. LOSARTAN [Concomitant]
     Indication: HYPERTONIA
     Route: 048
     Dates: start: 20130210
  4. HYDROCHLOROTHIAZIDE [Concomitant]
     Indication: HYPERTONIA
     Route: 048
     Dates: start: 20130210

REACTIONS (1)
  - Pancytopenia [Recovering/Resolving]
